FAERS Safety Report 9610621 (Version 3)
Quarter: 2013Q4

REPORT INFORMATION
  Report Type: Spontaneous
  Country: IT (occurrence: IT)
  Receive Date: 20131009
  Receipt Date: 20131217
  Transmission Date: 20140711
  Serious: Yes (Hospitalization)
  Sender: FDA-Public Use
  Company Number: IT-B.I. PHARMACEUTICALS,INC./RIDGEFIELD-2013-BI-31337IT

PATIENT
  Age: 83 Year
  Sex: Male

DRUGS (13)
  1. MICARDIS [Suspect]
     Indication: HYPERTENSION
     Dosage: 20 MG
     Route: 048
     Dates: start: 20130101, end: 20130918
  2. CARVEDILOLO [Suspect]
     Dosage: 25 MG
     Route: 048
     Dates: start: 20080601, end: 20130918
  3. LASIX [Suspect]
     Dosage: 100 MG
     Route: 048
     Dates: start: 20080601, end: 20130918
  4. LASIX [Suspect]
     Dosage: 25 MG
     Route: 048
  5. ALDACTONE [Suspect]
     Dosage: 25 MG
     Route: 048
     Dates: start: 20130101, end: 20130918
  6. AMIODARONE [Concomitant]
     Route: 048
     Dates: start: 20080101
  7. ROSUVASTATIN CALCIUM [Concomitant]
  8. AVODART [Concomitant]
     Dosage: 1 POSOLOGIC UNIT
     Route: 048
  9. ZYLORIC [Concomitant]
     Dosage: 300 MG
     Route: 048
  10. TAVOR [Concomitant]
  11. COUMADIN [Concomitant]
     Dosage: 5 MG
     Route: 048
  12. LANSOX [Concomitant]
  13. ANTIHYPERTENSIVE THERAPY [Concomitant]

REACTIONS (4)
  - Dehydration [Not Recovered/Not Resolved]
  - Hypotension [Not Recovered/Not Resolved]
  - Renal failure acute [Not Recovered/Not Resolved]
  - Syncope [Not Recovered/Not Resolved]
